FAERS Safety Report 9151212 (Version 1)
Quarter: 2013Q1

REPORT INFORMATION
  Report Type: Spontaneous
  Country: AE (occurrence: AE)
  Receive Date: 20130308
  Receipt Date: 20130308
  Transmission Date: 20140127
  Serious: Yes (Death, Hospitalization, Other)
  Sender: FDA-Public Use
  Company Number: AE-PFIZER INC-2005062522

PATIENT
  Age: 29 Year
  Sex: Male

DRUGS (2)
  1. CELEBREX [Suspect]
     Indication: PAIN
     Route: 048
     Dates: start: 2005, end: 2005
  2. WARFARIN [Concomitant]

REACTIONS (6)
  - Pulmonary embolism [Fatal]
  - Pain in extremity [Unknown]
  - Oedema peripheral [Unknown]
  - Vasodilation procedure [Unknown]
  - Abdominal pain [Unknown]
  - Vein disorder [Unknown]
